FAERS Safety Report 18452617 (Version 1)
Quarter: 2020Q4

REPORT INFORMATION
  Report Type: Spontaneous
  Country: US (occurrence: US)
  Receive Date: 20201102
  Receipt Date: 20201102
  Transmission Date: 20210114
  Serious: No
  Sender: FDA-Public Use
  Company Number: US-PFIZER INC-2020419947

PATIENT
  Age: 59 Year
  Sex: Female

DRUGS (1)
  1. LYRICA CR [Suspect]
     Active Substance: PREGABALIN
     Dosage: 82.5 MG, 1X/DAY (EVERY NIGHT AT BEDTIME)
     Route: 048

REACTIONS (2)
  - Pain [Unknown]
  - Night sweats [Unknown]
